FAERS Safety Report 8507317-X (Version None)
Quarter: 2012Q3

REPORT INFORMATION
  Report Type: 
  Country: None (occurrence: None)
  Receive Date: 20120712
  Receipt Date: 20120704
  Transmission Date: 20120928
  Serious: Yes (Death)
  Sender: FDA-Public Use
  Company Number: NL-BAXTER-2012BAX010591

PATIENT
  Sex: Female

DRUGS (1)
  1. ARTISS [Suspect]
     Indication: SKIN GRAFT

REACTIONS (1)
  - CARDIAC DISORDER [None]
